FAERS Safety Report 12281123 (Version 2)
Quarter: 2016Q2

REPORT INFORMATION
  Report Type: Spontaneous
  Country: US (occurrence: US)
  Receive Date: 20160419
  Receipt Date: 20160428
  Transmission Date: 20160815
  Serious: No
  Sender: FDA-Public Use
  Company Number: US-PFIZER INC-2016216477

PATIENT
  Age: 61 Year
  Sex: Female
  Weight: 79.38 kg

DRUGS (2)
  1. AZITHROMYCIN ANHYDROUS. [Suspect]
     Active Substance: AZITHROMYCIN ANHYDROUS
     Dosage: 1 CAPSULE, DAILY
     Route: 048
     Dates: start: 20160406
  2. AZITHROMYCIN ANHYDROUS. [Suspect]
     Active Substance: AZITHROMYCIN ANHYDROUS
     Indication: SINUSITIS BACTERIAL
     Dosage: 2 CAPSULES, DAILY
     Route: 048
     Dates: start: 20160405, end: 20160405

REACTIONS (7)
  - Discomfort [Recovered/Resolved]
  - Flatulence [Recovered/Resolved]
  - Abdominal discomfort [Recovered/Resolved]
  - Gastric disorder [Recovered/Resolved]
  - Dizziness [Recovered/Resolved]
  - Abdominal distension [Recovered/Resolved]
  - Nausea [Recovered/Resolved]

NARRATIVE: CASE EVENT DATE: 20160408
